FAERS Safety Report 14624504 (Version 1)
Quarter: 2018Q1

REPORT INFORMATION
  Report Type: Spontaneous
  Country: US (occurrence: US)
  Receive Date: 20180311
  Receipt Date: 20180311
  Transmission Date: 20180509
  Serious: Yes (Life-Threatening, Disabling)
  Sender: FDA-Public Use
  Company Number: None

PATIENT
  Age: 23 Year
  Sex: Female
  Weight: 51.75 kg

DRUGS (3)
  1. YAZ [Suspect]
     Active Substance: DROSPIRENONE\ETHINYL ESTRADIOL
     Indication: ACNE
     Dosage: ?          QUANTITY:1 TABLET(S);?
     Route: 048
     Dates: start: 20170813, end: 20171018
  2. TRETINOIN. [Concomitant]
     Active Substance: TRETINOIN
  3. CLINDAMYCIN. [Concomitant]
     Active Substance: CLINDAMYCIN

REACTIONS (8)
  - Asthenia [None]
  - Feeling of despair [None]
  - Anhedonia [None]
  - Therapy cessation [None]
  - Anxiety [None]
  - Depression [None]
  - Decreased appetite [None]
  - Feeling abnormal [None]

NARRATIVE: CASE EVENT DATE: 20171002
